FAERS Safety Report 17034962 (Version 1)
Quarter: 2019Q4

REPORT INFORMATION
  Report Type: Report from Study
  Country: ES (occurrence: ES)
  Receive Date: 20191115
  Receipt Date: 20191115
  Transmission Date: 20200122
  Serious: Yes (Hospitalization)
  Sender: FDA-Public Use
  Company Number: ES-TEVA-2019-ES-1136827

PATIENT
  Age: 77 Year
  Sex: Male

DRUGS (6)
  1. ALOPURINOL (318A) [Concomitant]
     Active Substance: ALLOPURINOL
     Indication: GOUT
     Dosage: 150MG/ DAY/ 2793 DAYS
     Route: 048
     Dates: start: 20100323, end: 20171113
  2. ENALAPRIL MALEATO (2142MA) [Suspect]
     Active Substance: ENALAPRIL MALEATE
     Indication: HYPERTENSION
     Dosage: 20MG/ DAY/ 1511 DAYS
     Route: 048
     Dates: start: 20130925, end: 20171113
  3. ARTEDIL 10 MG COMPRIMIDOS, 28 COMPRIMIDOS [Interacting]
     Active Substance: MANIDIPINE HYDROCHLORIDE
     Dosage: 10MG/ DAY/ 1077 DAYS
     Route: 048
     Dates: start: 20141203, end: 20171113
  4. FUROSEMIDA (1615A) [Interacting]
     Active Substance: FUROSEMIDE
     Dosage: 40MG/ DAY/ 2227 DAYS
     Route: 048
     Dates: start: 20111010, end: 20171113
  5. IBUPROFENO (1769A) [Interacting]
     Active Substance: IBUPROFEN
     Dosage: 29DAYS
     Route: 048
     Dates: start: 20171016, end: 20171113
  6. CARVEDILOL (2431A) [Interacting]
     Active Substance: CARVEDILOL
     Dosage: 6.25MG/ DAY/ 2245 DAYS
     Route: 048
     Dates: start: 20110922, end: 20171113

REACTIONS (3)
  - Drug interaction [Unknown]
  - Dehydration [Recovered/Resolved]
  - Acute kidney injury [Recovered/Resolved]

NARRATIVE: CASE EVENT DATE: 20171112
